FAERS Safety Report 22089462 (Version 1)
Quarter: 2023Q1

REPORT INFORMATION
  Report Type: Spontaneous
  Country: US (occurrence: US)
  Receive Date: 20230313
  Receipt Date: 20230313
  Transmission Date: 20230418
  Serious: No
  Sender: FDA-Public Use
  Company Number: US-009507513-2302USA006834

PATIENT
  Age: 40 Year
  Sex: Male

DRUGS (2)
  1. TEMODAR [Suspect]
     Active Substance: TEMOZOLOMIDE
     Indication: Glioblastoma multiforme
     Dosage: 75 MILLIGRAM/SQ. METER, FOR 21 DAYS
  2. TEMODAR [Suspect]
     Active Substance: TEMOZOLOMIDE
     Indication: Chemotherapy

REACTIONS (2)
  - Product dose omission issue [Unknown]
  - Product use issue [Unknown]
